FAERS Safety Report 7387816-7 (Version None)
Quarter: 2011Q1

REPORT INFORMATION
  Report Type: 
  Country: None (occurrence: None)
  Receive Date: 20110331
  Receipt Date: 20110322
  Transmission Date: 20110831
  Serious: Yes (Hospitalization, Other)
  Sender: FDA-Public Use
  Company Number: US-MERCK-1005USA03723

PATIENT
  Age: 49 Year
  Sex: Female

DRUGS (4)
  1. FOSAMAX [Suspect]
     Route: 048
     Dates: start: 20011101
  2. FOSAMAX [Suspect]
     Route: 048
     Dates: start: 20020801, end: 20080310
  3. ALENDRONATE SODIUM [Suspect]
     Indication: OSTEOPOROSIS
     Route: 048
     Dates: start: 20080701, end: 20090601
  4. FOSAMAX [Suspect]
     Indication: OSTEOPOROSIS
     Route: 048
     Dates: start: 20020101, end: 20080601

REACTIONS (12)
  - FEMUR FRACTURE [None]
  - GASTROOESOPHAGEAL REFLUX DISEASE [None]
  - LIMB DISCOMFORT [None]
  - HYPERTENSION [None]
  - LOW TURNOVER OSTEOPATHY [None]
  - LOWER LIMB FRACTURE [None]
  - JOINT INJURY [None]
  - ARTHRALGIA [None]
  - HAND FRACTURE [None]
  - HYPERSENSITIVITY [None]
  - BLOOD CHOLESTEROL INCREASED [None]
  - HYPOTHYROIDISM [None]
